FAERS Safety Report 18410162 (Version 5)
Quarter: 2020Q4

REPORT INFORMATION
  Report Type: Report from Study
  Country: CA (occurrence: CA)
  Receive Date: 20201021
  Receipt Date: 20201228
  Transmission Date: 20210114
  Serious: Yes (Death, Hospitalization, Other)
  Sender: FDA-Public Use
  Company Number: CA-BAYER-2020-224497

PATIENT
  Age: 61 Year
  Sex: Male

DRUGS (4)
  1. FRAGMIN [Concomitant]
     Active Substance: DALTEPARIN SODIUM
     Indication: THROMBOSIS PROPHYLAXIS
     Dosage: 1500 IU
     Route: 058
     Dates: start: 20201005
  2. WARFARIN [Concomitant]
     Active Substance: WARFARIN
     Indication: THROMBOSIS PROPHYLAXIS
     Dosage: 4-8 MG
     Dates: start: 2014, end: 20200930
  3. VITRAKVI [Suspect]
     Active Substance: LAROTRECTINIB
     Indication: NON-SMALL CELL LUNG CANCER
     Dosage: 80 MG, BID
     Route: 048
     Dates: start: 20190429, end: 20201118
  4. COUMADIN [Concomitant]
     Active Substance: WARFARIN SODIUM

REACTIONS (8)
  - General physical health deterioration [None]
  - Loss of consciousness [Not Recovered/Not Resolved]
  - Nasal aspiration [Recovered/Resolved]
  - Vomiting [Recovered/Resolved]
  - Fatigue [Not Recovered/Not Resolved]
  - Thrombosis [Recovering/Resolving]
  - Pulmonary thrombosis [None]
  - Cerebrovascular accident [Fatal]

NARRATIVE: CASE EVENT DATE: 20190429
